FAERS Safety Report 7460385-9 (Version None)
Quarter: 2011Q2

REPORT INFORMATION
  Report Type: 
  Country: None (occurrence: None)
  Receive Date: 20110505
  Receipt Date: 20110427
  Transmission Date: 20111010
  Serious: Yes (Other)
  Sender: FDA-Public Use
  Company Number: A0921671A

PATIENT
  Age: 14 Year
  Sex: Female

DRUGS (4)
  1. ADVAIR DISKUS 100/50 [Suspect]
     Indication: ASTHMA
     Dosage: 1PUFF TWICE PER DAY
     Route: 055
     Dates: start: 20090101, end: 20090101
  2. ANTIHISTAMINE [Concomitant]
  3. SINGULAIR [Concomitant]
  4. FLOVENT [Concomitant]

REACTIONS (2)
  - URTICARIA [None]
  - ANGIOEDEMA [None]
